FAERS Safety Report 22255085 (Version 1)
Quarter: 2023Q2

REPORT INFORMATION
  Report Type: Spontaneous
  Country: CN (occurrence: None)
  Receive Date: 20230426
  Receipt Date: 20230426
  Transmission Date: 20230721
  Serious: Yes (Other)
  Sender: FDA-Public Use
  Company Number: CN-ROCHE-3336808

PATIENT

DRUGS (1)
  1. AVASTIN [Suspect]
     Active Substance: BEVACIZUMAB
     Indication: Product used for unknown indication
     Route: 065

REACTIONS (12)
  - Gastrointestinal fistula [Unknown]
  - Abdominal abscess [Unknown]
  - Tracheo-oesophageal fistula [Unknown]
  - Thrombosis [Unknown]
  - Fistula [Unknown]
  - Haemorrhage [Unknown]
  - Arterial thrombosis [Unknown]
  - Pulmonary embolism [Unknown]
  - Hypertension [Unknown]
  - Proteinuria [Unknown]
  - Hypersensitivity [Unknown]
  - Infusion related reaction [Unknown]
